FAERS Safety Report 4378124-7 (Version None)
Quarter: 2004Q2

REPORT INFORMATION
  Report Type: 
  Country: None (occurrence: None)
  Receive Date: 20040609
  Receipt Date: 20040520
  Transmission Date: 20050107
  Serious: Yes (Death)
  Sender: FDA-Public Use
  Company Number: US_001051722

PATIENT
  Age: 16 Year
  Sex: Female

DRUGS (2)
  1. ONCOVIN [Suspect]
     Indication: BONE NEOPLASM
     Dosage: 2 MG/1 DAY
     Dates: start: 20000927, end: 20001003
  2. ACTINOMYCIN D [Concomitant]

REACTIONS (26)
  - ABDOMINAL PAIN [None]
  - ACCIDENTAL OVERDOSE [None]
  - ARTHRALGIA [None]
  - ASCITES [None]
  - BLISTER [None]
  - CARDIOVASCULAR DISORDER [None]
  - ERYTHEMA [None]
  - GASTROINTESTINAL MUCOSAL NECROSIS [None]
  - HEPATOCELLULAR DAMAGE [None]
  - HYPOAESTHESIA [None]
  - LOWER GASTROINTESTINAL HAEMORRHAGE [None]
  - MEDICATION ERROR [None]
  - MULTI-ORGAN FAILURE [None]
  - NERVE INJURY [None]
  - NERVOUS SYSTEM DISORDER [None]
  - OESOPHAGEAL HAEMORRHAGE [None]
  - PAIN IN JAW [None]
  - PALLOR [None]
  - PANCREATIC DISORDER [None]
  - PHARYNGOLARYNGEAL PAIN [None]
  - PLEURAL EFFUSION [None]
  - PULMONARY OEDEMA [None]
  - PYREXIA [None]
  - RENAL DISORDER [None]
  - SWOLLEN TONGUE [None]
  - WHITE BLOOD CELL COUNT DECREASED [None]
